FAERS Safety Report 7485003-5 (Version None)
Quarter: 2011Q2

REPORT INFORMATION
  Report Type: 
  Country: None (occurrence: None)
  Receive Date: 20110517
  Receipt Date: 20101009
  Transmission Date: 20111010
  Serious: No
  Sender: FDA-Public Use
  Company Number: US-BAYER-201022673BCC

PATIENT
  Age: 30 Year
  Sex: Male

DRUGS (1)
  1. ALEVE [Suspect]
     Indication: NASOPHARYNGITIS
     Dosage: 440 MG, ONCE
     Route: 048
     Dates: start: 20101009

REACTIONS (4)
  - HYPERSENSITIVITY [None]
  - RASH [None]
  - LIP SWELLING [None]
  - PARAESTHESIA ORAL [None]
